FAERS Safety Report 20767136 (Version 5)
Quarter: 2022Q2

REPORT INFORMATION
  Report Type: Spontaneous
  Country: US (occurrence: US)
  Receive Date: 20220429
  Receipt Date: 20220521
  Transmission Date: 20220720
  Serious: No
  Sender: FDA-Public Use
  Company Number: US-UNITED THERAPEUTICS-UNT-2022-008883

PATIENT
  Age: 31 Year
  Sex: Female
  Weight: 77.098 kg

DRUGS (4)
  1. REMODULIN [Suspect]
     Active Substance: TREPROSTINIL
     Indication: Pulmonary arterial hypertension
     Dosage: 0.016 ?G/KG (PRE-FILLED WITH 3ML PER CASSETTE AT PUMP RATE 30 MCL/HOUR), CONTINUING
     Route: 058
     Dates: start: 20220419
  2. REMODULIN [Suspect]
     Active Substance: TREPROSTINIL
     Dosage: 0.018 ?G/KG (PRE-FILLED WITH 3ML PER CASSETTE AT PUMP RATE 34 MCL/HOUR), CONTINUING
     Route: 058
  3. SILDENAFIL [Concomitant]
     Active Substance: SILDENAFIL
     Indication: Product used for unknown indication
     Dosage: UNK
     Route: 065
  4. OPSUMIT [Concomitant]
     Active Substance: MACITENTAN
     Indication: Product used for unknown indication
     Dosage: UNK
     Route: 065

REACTIONS (12)
  - Infusion site pain [Unknown]
  - Infusion site erythema [Unknown]
  - Infusion site mass [Unknown]
  - Infusion site swelling [Unknown]
  - Gait disturbance [Unknown]
  - Device failure [Recovered/Resolved]
  - Device power source issue [Unknown]
  - Device infusion issue [Unknown]
  - Infusion site reaction [Unknown]
  - Feeling abnormal [Unknown]
  - Abdominal distension [Unknown]
  - Peripheral swelling [Unknown]

NARRATIVE: CASE EVENT DATE: 20220401
